FAERS Safety Report 9335772 (Version 1)
Quarter: 2013Q2

REPORT INFORMATION
  Report Type: Spontaneous
  Country: JP (occurrence: JP)
  Receive Date: 20130606
  Receipt Date: 20130606
  Transmission Date: 20140414
  Serious: Yes (Other)
  Sender: FDA-Public Use
  Company Number: JP-ASTRAZENECA-2012SE70969

PATIENT
  Age: 56 Year
  Sex: Female

DRUGS (1)
  1. ARIMIDEX [Suspect]
     Route: 048
     Dates: start: 20120703, end: 20120903

REACTIONS (3)
  - Metastases to spine [Unknown]
  - Carcinoembryonic antigen increased [Recovered/Resolved]
  - Hypersensitivity [Recovered/Resolved]
